FAERS Safety Report 4337300-X (Version None)
Quarter: 2004Q2

REPORT INFORMATION
  Report Type: 
  Country: None (occurrence: None)
  Receive Date: 20040408
  Receipt Date: 20040326
  Transmission Date: 20050107
  Serious: Yes (Hospitalization, Other)
  Sender: FDA-Public Use
  Company Number: 2004020503

PATIENT
  Age: 70 Year
  Sex: Female

DRUGS (9)
  1. LIPITOR [Suspect]
     Indication: HYPERLIPIDAEMIA
     Dosage: ORAL
     Route: 048
     Dates: end: 20030101
  2. FAMOTIDINE [Suspect]
     Indication: ILL-DEFINED DISORDER
     Dosage: ORAL
     Route: 048
     Dates: end: 20030101
  3. NICORANDIL (NICORANDIL) [Suspect]
     Indication: ILL-DEFINED DISORDER
     Dosage: ORAL
     Route: 048
     Dates: end: 20030101
  4. ATENOLOL [Suspect]
     Indication: ILL-DEFINED DISORDER
     Dosage: ORAL
     Route: 048
     Dates: end: 20030101
  5. ALL OTHER THERAPEUTIC PRODUCTS (ALL OTHER THERAPEUTIC PRODUCTS) [Suspect]
     Indication: ILL-DEFINED DISORDER
     Dosage: ORAL
     Route: 048
     Dates: end: 20030101
  6. AMLODIPINE (AMLODIPINE BESILATE) [Suspect]
     Indication: ILL-DEFINED DISORDER
     Dosage: ORAL
     Route: 048
     Dates: end: 20030101
  7. ETIZOLAM (ETIZOLAM) [Concomitant]
  8. LEVOFLOXACIN [Concomitant]
  9. CEFTRIAXONE SODUIM [Concomitant]

REACTIONS (12)
  - ASPARTATE AMINOTRANSFERASE INCREASED [None]
  - BLEPHARITIS [None]
  - BLOOD GLUCOSE INCREASED [None]
  - BLOOD PRESSURE DIASTOLIC DECREASED [None]
  - BRONCHITIS ACUTE [None]
  - CONJUNCTIVITIS [None]
  - HYPERSENSITIVITY [None]
  - INTERSTITIAL LUNG DISEASE [None]
  - LYMPHOCYTE STIMULATION TEST POSITIVE [None]
  - PLATELET AGGREGATION ABNORMAL [None]
  - PLATELET COUNT ABNORMAL [None]
  - PLATELET COUNT DECREASED [None]
